FAERS Safety Report 23929155 (Version 1)
Quarter: 2024Q2

REPORT INFORMATION
  Report Type: Spontaneous
  Country: US (occurrence: US)
  Receive Date: 20240601
  Receipt Date: 20240601
  Transmission Date: 20240716
  Serious: Yes (Other)
  Sender: FDA-Public Use
  Company Number: US-AMGEN-USASP2024103310

PATIENT
  Sex: Male

DRUGS (1)
  1. BEVACIZUMAB [Suspect]
     Active Substance: BEVACIZUMAB
     Indication: Cystoid macular oedema
     Dosage: UNK
     Route: 065

REACTIONS (5)
  - Retinal oedema [Not Recovered/Not Resolved]
  - Retinal exudates [Not Recovered/Not Resolved]
  - Drug ineffective for unapproved indication [Unknown]
  - Cataract subcapsular [Unknown]
  - Off label use [Unknown]
